FAERS Safety Report 10166546 (Version 1)
Quarter: 2014Q2

REPORT INFORMATION
  Report Type: Spontaneous
  Country: US (occurrence: US)
  Receive Date: 20140512
  Receipt Date: 20140512
  Transmission Date: 20141212
  Serious: No
  Sender: FDA-Public Use
  Company Number: US-JNJFOC-20140501960

PATIENT
  Sex: Female
  Weight: 74.84 kg

DRUGS (14)
  1. FENTANYL [Suspect]
     Indication: FIBROMYALGIA
     Route: 062
     Dates: start: 2013
  2. FENTANYL [Suspect]
     Indication: FIBROMYALGIA
     Route: 062
     Dates: start: 2013
  3. FLEXERIL [Concomitant]
     Indication: MUSCLE RELAXANT THERAPY
     Route: 048
  4. LYRICA [Concomitant]
     Indication: PAIN
     Route: 048
  5. GABAPENTIN [Concomitant]
     Indication: PAIN
     Route: 048
     Dates: start: 2014
  6. BIRTH CONTROL PILL [Concomitant]
     Indication: CONTRACEPTION
     Route: 048
  7. SYNTHROID [Concomitant]
     Indication: THYROID DISORDER
     Route: 048
  8. XANAX [Concomitant]
     Indication: ANXIETY
     Route: 048
  9. PHENERGAN [Concomitant]
     Indication: NAUSEA
     Route: 048
  10. VITAMIN D [Concomitant]
     Indication: BONE DISORDER
     Route: 048
  11. OXYCODONE [Concomitant]
     Indication: PAIN
     Route: 048
  12. PROZAC [Concomitant]
     Indication: DEPRESSION
     Route: 048
  13. STOOL SOFTENER [Concomitant]
     Indication: CONSTIPATION
     Route: 048
  14. LAXATIVES [Concomitant]
     Indication: CONSTIPATION
     Route: 048

REACTIONS (4)
  - Drug dose omission [Unknown]
  - Application site rash [Unknown]
  - Drug administered at inappropriate site [Unknown]
  - Product quality issue [Unknown]
